FAERS Safety Report 4546705-3 (Version None)
Quarter: 2005Q1

REPORT INFORMATION
  Report Type: 
  Country: None (occurrence: None)
  Receive Date: 20050105
  Receipt Date: 20041222
  Transmission Date: 20050727
  Serious: Yes (Life-Threatening, Other)
  Sender: FDA-Public Use
  Company Number: JP-2004-036229

PATIENT
  Age: 65 Year
  Sex: Female

DRUGS (11)
  1. PROSCOPE 300 (OPROMIDE) INFUSION [Suspect]
     Indication: ANGIOGRAM
     Dosage: 24 MI, INTRA-ARTERIAL
     Route: 013
     Dates: start: 20041130, end: 20041130
  2. FASUDIL HYDROCHLORIDE [Concomitant]
  3. FAMOTIDINE [Concomitant]
  4. FLUMARIN (FLOMOXEF SODIUM) [Concomitant]
  5. PHENYTOIN SODIUM [Concomitant]
  6. PROPOFOL [Concomitant]
  7. ATROPINE [Concomitant]
  8. HYDROXYZINE HCL [Concomitant]
  9. OXYGEN (OXYGEN) [Concomitant]
  10. PENTAZOCINE LACTATE [Concomitant]
  11. DIAZEPAM [Concomitant]

REACTIONS (4)
  - ARTERIOSCLEROSIS [None]
  - CEREBRAL INFARCTION [None]
  - CEREBROVASCULAR SPASM [None]
  - SUBARACHNOID HAEMORRHAGE [None]
